FAERS Safety Report 4556120-4 (Version None)
Quarter: 2005Q1

REPORT INFORMATION
  Report Type: 
  Country: None (occurrence: None)
  Receive Date: 20050118
  Receipt Date: 20041105
  Transmission Date: 20050727
  Serious: Yes (Hospitalization)
  Sender: FDA-Public Use
  Company Number: A03200403718

PATIENT
  Age: 90 Year
  Sex: Male

DRUGS (2)
  1. UROXATRAL [Suspect]
     Indication: BENIGN PROSTATIC HYPERPLASIA
     Dosage: 10 MG OD ORAL
     Route: 048
  2. UROXATRAL [Suspect]
     Indication: URINARY TRACT DISORDER
     Dosage: 10 MG OD ORAL
     Route: 048

REACTIONS (1)
  - ORTHOSTATIC HYPOTENSION [None]
